FAERS Safety Report 9440554 (Version 1)
Quarter: 2013Q3

REPORT INFORMATION
  Report Type: Spontaneous
  Country: ES (occurrence: ES)
  Receive Date: 20130805
  Receipt Date: 20130805
  Transmission Date: 20140515
  Serious: Yes (Life-Threatening, Hospitalization)
  Sender: FDA-Public Use
  Company Number: ES-ASTRAZENECA-2013SE60391

PATIENT
  Age: 59 Year
  Sex: Female

DRUGS (2)
  1. BRILIQUE [Suspect]
     Route: 048
     Dates: start: 20130508, end: 20130511
  2. REOPRO [Suspect]
     Indication: PERCUTANEOUS CORONARY INTERVENTION
     Dosage: 2 MG/ML, 1 VIAL OF 5 ML, 40 MG
     Route: 042
     Dates: start: 20130507, end: 20130507

REACTIONS (2)
  - Thrombocytopenia [Unknown]
  - Melaena [Unknown]
